FAERS Safety Report 14683213 (Version 7)
Quarter: 2018Q2

REPORT INFORMATION
  Report Type: Spontaneous
  Country: US (occurrence: US)
  Receive Date: 20180327
  Receipt Date: 20180621
  Transmission Date: 20180711
  Serious: Yes (Other)
  Sender: FDA-Public Use
  Company Number: US-AMGEN-USASP2018040382

PATIENT
  Sex: Female
  Weight: 63.5 kg

DRUGS (4)
  1. HUMIRA [Suspect]
     Active Substance: ADALIMUMAB
     Indication: RHEUMATOID ARTHRITIS
     Dosage: UNK
     Route: 058
  2. ENBREL [Suspect]
     Active Substance: ETANERCEPT
     Indication: RHEUMATOID ARTHRITIS
     Dosage: 50 MG, QWK
     Route: 058
  3. XELJANZ XR [Suspect]
     Active Substance: TOFACITINIB CITRATE
     Indication: RHEUMATOID ARTHRITIS
     Dosage: 11 MG, QD
     Route: 048
     Dates: start: 201803, end: 201804
  4. METHOTREXATE. [Concomitant]
     Active Substance: METHOTREXATE
     Indication: RHEUMATOID ARTHRITIS
     Dosage: UNK
     Route: 048

REACTIONS (12)
  - Rash [Unknown]
  - Injection site induration [Unknown]
  - Treatment failure [Unknown]
  - Skin reaction [Unknown]
  - Foot fracture [Unknown]
  - Injection site erythema [Unknown]
  - Bacterial infection [Not Recovered/Not Resolved]
  - Pollakiuria [Recovering/Resolving]
  - Fungal infection [Not Recovered/Not Resolved]
  - Weight increased [Unknown]
  - Mitral valve prolapse [Unknown]
  - Injection site pain [Unknown]

NARRATIVE: CASE EVENT DATE: 2018
